FAERS Safety Report 6749664-8 (Version None)
Quarter: 2010Q2

REPORT INFORMATION
  Report Type: 
  Country: None (occurrence: None)
  Receive Date: 20100601
  Receipt Date: 20100527
  Transmission Date: 20101027
  Serious: Yes (Hospitalization)
  Sender: FDA-Public Use
  Company Number: B0657402A

PATIENT
  Sex: Male

DRUGS (3)
  1. AUGMENTIN '125' [Suspect]
     Indication: DRUG USE FOR UNKNOWN INDICATION
     Dosage: 1G THREE TIMES PER DAY
     Route: 048
     Dates: start: 20091113, end: 20091124
  2. AUGMENTIN '125' [Suspect]
     Indication: DRUG USE FOR UNKNOWN INDICATION
     Route: 042
     Dates: start: 20091107, end: 20091112
  3. IODINE [Concomitant]
     Indication: SCAN
     Dates: start: 20091109, end: 20091109

REACTIONS (3)
  - PRURITUS [None]
  - RASH MORBILLIFORM [None]
  - SKIN LESION [None]
